FAERS Safety Report 10592518 (Version 1)
Quarter: 2014Q4

REPORT INFORMATION
  Report Type: Spontaneous
  Country: US (occurrence: None)
  Receive Date: 20141118
  Receipt Date: 20141118
  Transmission Date: 20150529
  Serious: Yes (Other)
  Sender: FDA-Public Use
  Company Number: US-MDCO-14-00288

PATIENT
  Age: 36 Year
  Sex: Female

DRUGS (5)
  1. EFFIENT (PRASUGREL HYDROCHLORIDE) [Concomitant]
  2. ASPIRIN (ACETYLSALICYLIC ACID) [Concomitant]
     Active Substance: ASPIRIN
  3. NITROGLYCERIN (GLYCERYL TRINITRATE) [Concomitant]
  4. ANGIOMAX [Suspect]
     Active Substance: BIVALIRUDIN
     Indication: PRODUCT USED FOR UNKNOWN INDICATION
     Dosage: NOT REPORTED, INTRAVENOUS BOLUS
     Route: 042
     Dates: start: 20141103, end: 20141103
  5. HEPARIN [Concomitant]
     Active Substance: HEPARIN SODIUM

REACTIONS (4)
  - Thrombosis in device [None]
  - Myocardial infarction [None]
  - Coronary artery thrombosis [None]
  - Drug effect incomplete [None]

NARRATIVE: CASE EVENT DATE: 20141103
